FAERS Safety Report 6097764-0 (Version None)
Quarter: 2009Q1

REPORT INFORMATION
  Report Type: 
  Country: None (occurrence: None)
  Receive Date: 20090227
  Receipt Date: 20090223
  Transmission Date: 20090719
  Serious: Yes (Disabling)
  Sender: FDA-Public Use
  Company Number: GB-JNJFOC-20071202343

PATIENT
  Age: 21 Year
  Sex: Female

DRUGS (4)
  1. TYROCETS [Suspect]
     Indication: OROPHARYNGEAL PAIN
  2. UNIFLU [Suspect]
     Indication: DRUG USE FOR UNKNOWN INDICATION
  3. ACETAZOLAMIDE [Concomitant]
  4. LAMOTRIGINE [Concomitant]

REACTIONS (1)
  - CONVULSION [None]
